FAERS Safety Report 20487412 (Version 1)
Quarter: 2022Q1

REPORT INFORMATION
  Report Type: Report from Study
  Country: US (occurrence: US)
  Receive Date: 20220218
  Receipt Date: 20220218
  Transmission Date: 20220424
  Serious: Yes (Hospitalization)
  Sender: FDA-Public Use
  Company Number: US-ABBVIE-22K-163-4280521-00

PATIENT
  Age: 42 Year
  Sex: Male
  Weight: 59.020 kg

DRUGS (1)
  1. CREON [Suspect]
     Active Substance: PANCRELIPASE AMYLASE\PANCRELIPASE LIPASE\PANCRELIPASE PROTEASE
     Indication: Pancreatitis chronic
     Dosage: 2 CAPSULES PER MEAL AND DURING SNACKS BY MOUTH 4 TIMES A DAY
     Route: 048
     Dates: start: 2019

REACTIONS (7)
  - Wolff-Parkinson-White syndrome [Recovering/Resolving]
  - Heart rate increased [Recovering/Resolving]
  - Speech disorder [Not Recovered/Not Resolved]
  - Groin pain [Not Recovered/Not Resolved]
  - Weight decreased [Unknown]
  - Inappropriate schedule of product administration [Unknown]
  - Cardiac discomfort [Not Recovered/Not Resolved]

NARRATIVE: CASE EVENT DATE: 20210101
